FAERS Safety Report 21313302 (Version 3)
Quarter: 2022Q3

REPORT INFORMATION
  Report Type: Spontaneous
  Country: US (occurrence: US)
  Receive Date: 20220909
  Receipt Date: 20220915
  Transmission Date: 20221026
  Serious: Yes (Other)
  Sender: FDA-Public Use
  Company Number: US-BAYER-2022A124327

PATIENT
  Age: 56 Year
  Sex: Female

DRUGS (1)
  1. MIRENA [Suspect]
     Active Substance: LEVONORGESTREL
     Dosage: 20?G/DAY
     Route: 015
     Dates: start: 20211230, end: 20220219

REACTIONS (10)
  - Device breakage [None]
  - Procedural pain [None]
  - Pelvic pain [None]
  - Abdominal pain lower [None]
  - Palpitations [None]
  - Uterine cyst [None]
  - Device expulsion [Recovered/Resolved]
  - Vulvovaginal pain [None]
  - Abdominal pain lower [Not Recovered/Not Resolved]
  - Medical device discomfort [None]

NARRATIVE: CASE EVENT DATE: 20211230
